FAERS Safety Report 18197517 (Version 1)
Quarter: 2020Q3

REPORT INFORMATION
  Report Type: Spontaneous
  Country: US (occurrence: US)
  Receive Date: 20200826
  Receipt Date: 20200826
  Transmission Date: 20201103
  Serious: No
  Sender: FDA-Public Use
  Company Number: None

PATIENT
  Age: 20 Year
  Sex: Female
  Weight: 49.5 kg

DRUGS (1)
  1. ELURYNG [Suspect]
     Active Substance: ETHINYL ESTRADIOL\ETONOGESTREL
     Indication: CONTRACEPTION
     Dosage: ?          QUANTITY:1 VAGINAL RING;OTHER FREQUENCY:3 WEEKS,1 WEEK OFF;?
     Route: 067
     Dates: start: 20200223, end: 20200826

REACTIONS (2)
  - Product substitution issue [None]
  - Bacterial vaginosis [None]

NARRATIVE: CASE EVENT DATE: 20200225
